FAERS Safety Report 13862985 (Version 2)
Quarter: 2017Q4

REPORT INFORMATION
  Report Type: Spontaneous
  Country: CM (occurrence: CM)
  Receive Date: 20170814
  Receipt Date: 20171018
  Transmission Date: 20180320
  Serious: Yes (Other)
  Sender: FDA-Public Use
  Company Number: CM-SUN PHARMACEUTICAL INDUSTRIES LTD-2017RR-147524

PATIENT
  Age: 74 Year
  Sex: Female

DRUGS (7)
  1. VITAMIN B [Concomitant]
     Active Substance: VITAMIN B
     Indication: MUSCULOSKELETAL PAIN
  2. VITAMIN B [Concomitant]
     Active Substance: VITAMIN B
     Indication: ARTHRALGIA
  3. CETIRIZINE [Concomitant]
     Active Substance: CETIRIZINE HYDROCHLORIDE
     Indication: FACE OEDEMA
     Dosage: 10 MG, DAILY
     Route: 065
  4. AMLODIPINE [Suspect]
     Active Substance: AMLODIPINE BESYLATE
     Indication: HYPERTENSION
     Dosage: 5 MG, DAILY
     Route: 065
  5. AMLODIPINE 5MG, INDAPAMIDE 1.5MG [Suspect]
     Active Substance: AMLODIPINE\INDAPAMIDE
     Indication: HYPERTENSION
     Dosage: 2 DF, BID
     Route: 065
  6. PERINDOPRIL [Suspect]
     Active Substance: PERINDOPRIL
     Indication: HYPERTENSION
     Dosage: 5 MG, DAILY, FOR OVER 13 YEARS
     Route: 065
  7. VITAMIN B [Concomitant]
     Active Substance: VITAMIN B
     Indication: NECK PAIN
     Dosage: 2 DF, BID, HIGH-DOSE
     Route: 065

REACTIONS (5)
  - Angioedema [Unknown]
  - Hypotension [Unknown]
  - Treatment noncompliance [Unknown]
  - Incorrect dose administered [Unknown]
  - Blood pressure inadequately controlled [Unknown]
